FAERS Safety Report 7819651-7 (Version None)
Quarter: 2011Q4

REPORT INFORMATION
  Report Type: 
  Country: None (occurrence: None)
  Receive Date: 20111013
  Receipt Date: 20110927
  Transmission Date: 20120403
  Serious: Yes (Other)
  Sender: FDA-Public Use
  Company Number: METH20110009

PATIENT
  Age: 62 Year
  Sex: Male

DRUGS (2)
  1. METHYLPREDNISOLONE [Suspect]
     Indication: PEMPHIGUS
     Dosage: 120 MG, 1 IN 1 D, ORAL
     Route: 048
  2. AZATHIOPRINE [Suspect]
     Indication: PEMPHIGUS
     Dosage: 150 MG, 1 IN 1 D, ORAL
     Route: 048

REACTIONS (8)
  - PALPITATIONS [None]
  - AORTIC VALVE INCOMPETENCE [None]
  - DILATATION VENTRICULAR [None]
  - RED BLOOD CELL SEDIMENTATION RATE INCREASED [None]
  - ENDOCARDITIS STAPHYLOCOCCAL [None]
  - WHITE BLOOD CELL COUNT INCREASED [None]
  - PYREXIA [None]
  - FATIGUE [None]
